FAERS Safety Report 8859639 (Version 1)
Quarter: 2012Q4

REPORT INFORMATION
  Report Type: Report from Study
  Country: GB (occurrence: GB)
  Receive Date: 20121025
  Receipt Date: 20121025
  Transmission Date: 20130627
  Serious: Yes (Other)
  Sender: FDA-Public Use
  Company Number: GB-ROCHE-1146887

PATIENT
  Age: 54 Year
  Sex: Female

DRUGS (5)
  1. RIBAVIRIN [Suspect]
     Indication: HEPATITIS C
     Route: 065
     Dates: start: 20120925
  2. TELAPREVIR [Suspect]
     Indication: HEPATITIS C
     Route: 048
     Dates: start: 20120925
  3. INTERFERON NOS [Suspect]
     Indication: HEPATITIS C
     Route: 065
     Dates: start: 20120925
  4. PARACETAMOL [Concomitant]
  5. CODEINE [Concomitant]

REACTIONS (3)
  - Abdominal distension [Unknown]
  - Weight increased [Unknown]
  - Urinary tract infection [Unknown]
